FAERS Safety Report 9000542 (Version 2)
Quarter: 2013Q2

REPORT INFORMATION
  Report Type: Spontaneous
  Country: GB (occurrence: None)
  Receive Date: 20121221
  Receipt Date: 20130607
  Transmission Date: 20140414
  Serious: Yes (Other)
  Sender: FDA-Public Use
  Company Number: AUR-APL-2012-05413

PATIENT
  Age: 53 Year
  Sex: Male
  Weight: 63.35 kg

DRUGS (10)
  1. AMOXICILLIN [Suspect]
     Indication: TOOTH INFECTION
     Dosage: 750 MG (250 MG, 3 IN 1 D), UNKNOWN
     Dates: start: 20121025, end: 20121026
  2. STELARA [Suspect]
     Indication: PSORIASIS
     Dosage: 45 MG, 1 IN 12 WK, SUBCUTANEOUS
     Route: 058
     Dates: start: 20120303
  3. BETNOVATE (BETAMETHASONE VALERATE) [Concomitant]
  4. DERMOL (DERMOL/07245501/) [Concomitant]
  5. DOVOBET (DAIVOBET) [Concomitant]
  6. HYDROXYZINE (HYDROXYZINE) [Concomitant]
  7. METHOTREXATE (METHOTREXATE) [Concomitant]
  8. PARACETAMOL (PARACETAMOL) [Concomitant]
  9. PARAFFIN LIQUID (PARAFFIN, LIQUID) [Concomitant]
  10. WHITE SOFT PARAFFIN (WHITE SOFT PARAFFIN) [Concomitant]

REACTIONS (6)
  - Psoriasis [None]
  - Tooth infection [None]
  - Blister [None]
  - Dermatitis [None]
  - Pruritus [None]
  - Rash [None]
